FAERS Safety Report 24357863 (Version 1)
Quarter: 2024Q3

REPORT INFORMATION
  Report Type: Spontaneous
  Country: GB (occurrence: GB)
  Receive Date: 20240924
  Receipt Date: 20240924
  Transmission Date: 20241017
  Serious: Yes (Other)
  Sender: ELI LILLY AND CO
  Company Number: None

PATIENT
  Age: 25 Year
  Sex: Female
  Weight: 108 kg

DRUGS (2)
  1. MOUNJARO [Suspect]
     Active Substance: TIRZEPATIDE
     Indication: Weight control
     Dosage: 2.5 MG, WEEKLY (1/W)
     Route: 065
     Dates: start: 20240821, end: 20240823
  2. MOUNJARO [Suspect]
     Active Substance: TIRZEPATIDE
     Indication: Weight control
     Dosage: 2.5 MG, WEEKLY (1/W)
     Route: 065
     Dates: start: 20240821, end: 20240823

REACTIONS (14)
  - Vision blurred [Not Recovered/Not Resolved]
  - Migraine [Unknown]
  - Cold sweat [Unknown]
  - Piloerection [Unknown]
  - Hyperhidrosis [Unknown]
  - Pyrexia [Not Recovered/Not Resolved]
  - Muscle spasms [Unknown]
  - Chills [Unknown]
  - Feeling of body temperature change [Unknown]
  - Abdominal pain upper [Unknown]
  - Diarrhoea [Unknown]
  - Lethargy [Not Recovered/Not Resolved]
  - Vomiting [Recovered/Resolved]
  - Eructation [Unknown]

NARRATIVE: CASE EVENT DATE: 20240823
